FAERS Safety Report 5517122-4 (Version None)
Quarter: 2007Q4

REPORT INFORMATION
  Report Type: 
  Country: None (occurrence: None)
  Receive Date: 20071114
  Receipt Date: 20071107
  Transmission Date: 20080405
  Serious: Yes (Hospitalization)
  Sender: FDA-Public Use
  Company Number: B0435966A

PATIENT
  Age: 56 Year
  Sex: Male
  Weight: 64 kg

DRUGS (10)
  1. VALTREX [Suspect]
     Indication: HERPES ZOSTER
     Dosage: 1000MG PER DAY
     Route: 048
     Dates: start: 20060818, end: 20060819
  2. ALLOPURINOL [Concomitant]
     Dosage: 100MG PER DAY
     Route: 048
     Dates: start: 20010128
  3. CALTAN [Concomitant]
     Indication: OSTEOPOROSIS
     Dosage: 3000MG PER DAY
     Route: 048
     Dates: start: 20041028
  4. FEROGRADUMET [Concomitant]
     Dosage: 105MG PER DAY
     Route: 048
     Dates: start: 20050113
  5. ATELEC [Concomitant]
     Indication: RENAL HYPERTENSION
     Dosage: 20MG PER DAY
     Route: 048
     Dates: start: 20050621
  6. OLMETEC [Concomitant]
     Indication: RENAL HYPERTENSION
     Dosage: 40MG PER DAY
     Route: 048
     Dates: start: 20051116
  7. ALFAROL [Concomitant]
     Indication: OSTEOPOROSIS
     Dosage: .25MG PER DAY
     Route: 048
     Dates: start: 20060328
  8. SHAKUYAKU-KANZO-TO [Concomitant]
     Dosage: 2.5G PER DAY
     Route: 048
     Dates: start: 20060525
  9. RHYTHMY [Concomitant]
     Indication: INSOMNIA
     Dosage: 2MG PER DAY
     Route: 048
     Dates: start: 20060808
  10. NIFEDIPINE [Concomitant]
     Indication: HYPERTENSION
     Dates: start: 20060823

REACTIONS (12)
  - ABNORMAL BEHAVIOUR [None]
  - ALTERED STATE OF CONSCIOUSNESS [None]
  - ASTHENIA [None]
  - DISORIENTATION [None]
  - DIZZINESS [None]
  - ENCEPHALOPATHY [None]
  - FEELING ABNORMAL [None]
  - HYPERTENSION [None]
  - MALAISE [None]
  - PYREXIA [None]
  - SOMNOLENCE [None]
  - SPEECH DISORDER [None]
